FAERS Safety Report 17959078 (Version 1)
Quarter: 2020Q2

REPORT INFORMATION
  Report Type: Spontaneous
  Country: DE (occurrence: DE)
  Receive Date: 20200630
  Receipt Date: 20200630
  Transmission Date: 20200714
  Serious: Yes (Congenital Anomaly, Other)
  Sender: FDA-Public Use
  Company Number: DE-AUROBINDO-AUR-APL-2020-031088

PATIENT
  Sex: Female
  Weight: 2.72 kg

DRUGS (3)
  1. CITALOPRAM [Suspect]
     Active Substance: CITALOPRAM HYDROBROMIDE
     Indication: PRODUCT USED FOR UNKNOWN INDICATION
     Dosage: 22.5 MILLIGRAM, ONCE A DAY (BIS 15), FIRST TRIMESTER
     Route: 064
     Dates: start: 20181119
  2. COPAXONE [Suspect]
     Active Substance: GLATIRAMER ACETATE
     Indication: PRODUCT USED FOR UNKNOWN INDICATION
     Dosage: 20 MILLIGRAM, 3 TIMES A DAY, EVERY WEEK, FIRST TRIMESTER, 3 SEPARATED DOSES
     Route: 064
     Dates: start: 20181119
  3. SPASMEX [Concomitant]
     Indication: PRODUCT USED FOR UNKNOWN INDICATION
     Dosage: 30 MILLIGRAM, ONCE A DAY (30-0-0) 0-11.2 GESTATIONAL WEEK
     Route: 064
     Dates: start: 20181119

REACTIONS (4)
  - Kinematic imbalances due to suboccipital strain [Recovered/Resolved]
  - Foetal exposure during pregnancy [Unknown]
  - Infantile haemangioma [Unknown]
  - Hypotonia [Unknown]
